FAERS Safety Report 16871589 (Version 1)
Quarter: 2019Q4

REPORT INFORMATION
  Report Type: Report from Study
  Country: IT (occurrence: IT)
  Receive Date: 20191001
  Receipt Date: 20191001
  Transmission Date: 20200122
  Serious: Yes (Other)
  Sender: FDA-Public Use
  Company Number: IT-TEVA-2019-IT-1114812

PATIENT
  Age: 77 Year
  Sex: Female

DRUGS (5)
  1. GLIATILIN 400 MG CAPSULE [Concomitant]
     Route: 048
  2. EUCOMBIDEX 0,3% + 0,1% COLLIRIO, SOLUZIONE. [Concomitant]
  3. ACICLOVIR [Suspect]
     Active Substance: ACYCLOVIR
     Route: 003
  4. GLADIO 100 MG COMPRESSE RIVESTITE [Concomitant]
     Route: 048
  5. XANAX [Concomitant]
     Active Substance: ALPRAZOLAM
     Route: 048

REACTIONS (1)
  - Lip oedema [Unknown]

NARRATIVE: CASE EVENT DATE: 20190418
